FAERS Safety Report 19262781 (Version 1)
Quarter: 2021Q2

REPORT INFORMATION
  Report Type: Spontaneous
  Country: DE (occurrence: DE)
  Receive Date: 20210517
  Receipt Date: 20210517
  Transmission Date: 20210717
  Serious: Yes (Other)
  Sender: FDA-Public Use
  Company Number: DE-ROCHE-2829877

PATIENT
  Sex: Female

DRUGS (3)
  1. METHOTREXAT [Concomitant]
     Active Substance: METHOTREXATE
     Dates: start: 2017
  2. CORTISONE [Concomitant]
     Active Substance: CORTISONE
  3. CELLCEPT [Suspect]
     Active Substance: MYCOPHENOLATE MOFETIL\MYCOPHENOLATE MOFETIL HYDROCHLORIDE
     Indication: NEUROSARCOIDOSIS
     Route: 048
     Dates: end: 2017

REACTIONS (9)
  - Tremor [Recovered/Resolved]
  - Poor quality sleep [Recovered/Resolved]
  - Muscular weakness [Not Recovered/Not Resolved]
  - Off label use [Unknown]
  - Hypokalaemia [Recovered/Resolved]
  - Peroneal nerve palsy [Recovered/Resolved]
  - Ill-defined disorder [Recovered/Resolved]
  - Muscle spasms [Recovered/Resolved]
  - Myasthenic syndrome [Unknown]
